FAERS Safety Report 20850127 (Version 2)
Quarter: 2022Q2

REPORT INFORMATION
  Report Type: Spontaneous
  Country: BR (occurrence: BR)
  Receive Date: 20220519
  Receipt Date: 20220620
  Transmission Date: 20220720
  Serious: Yes (Other)
  Sender: FDA-Public Use
  Company Number: BR-NOVARTISPH-NVSC2022BR113954

PATIENT
  Sex: Female

DRUGS (1)
  1. TEGRETOL [Suspect]
     Active Substance: CARBAMAZEPINE
     Indication: Brain malformation
     Dosage: 400 MG
     Route: 065

REACTIONS (4)
  - Seizure [Unknown]
  - Muscle spasms [Recovered/Resolved]
  - Product use in unapproved indication [Unknown]
  - Product availability issue [Unknown]
